FAERS Safety Report 5658596-8 (Version None)
Quarter: 2008Q1

REPORT INFORMATION
  Report Type: 
  Country: None (occurrence: None)
  Receive Date: 20080310
  Receipt Date: 20070312
  Transmission Date: 20080703
  Serious: No
  Sender: FDA-Public Use
  Company Number: US-BAYER-200710776BCC

PATIENT
  Sex: Male
  Weight: 71 kg

DRUGS (4)
  1. ALEVE [Suspect]
     Indication: PAIN IN EXTREMITY
     Route: 048
  2. HYPERTENSION MEDICATION [Concomitant]
  3. ONE-A-DAY MEN'S HEALTH FORMULA [Concomitant]
     Dates: start: 20040101
  4. ASPIRIN [Concomitant]
     Dosage: TOTAL DAILY DOSE: 81 MG  UNIT DOSE: 81 MG
     Dates: start: 19970101

REACTIONS (2)
  - BACK PAIN [None]
  - PAIN IN EXTREMITY [None]
